FAERS Safety Report 4443133-6 (Version None)
Quarter: 2004Q3

REPORT INFORMATION
  Report Type: 
  Country: None (occurrence: None)
  Receive Date: 20040901
  Receipt Date: 20040819
  Transmission Date: 20050211
  Serious: Yes (Hospitalization)
  Sender: FDA-Public Use
  Company Number: 2004SE04671

PATIENT
  Age: 62 Year
  Sex: Female

DRUGS (11)
  1. BLOPRESS [Suspect]
     Indication: CEREBRAL INFARCTION
     Dosage: 8 MG DAILY PO
     Route: 048
     Dates: start: 20040727, end: 20040810
  2. TANATRIL [Suspect]
     Dates: end: 20040810
  3. NORVASC [Suspect]
     Dates: end: 20040810
  4. DEPAKENE [Suspect]
     Dates: end: 20040810
  5. 8-HOUR BAYER [Suspect]
     Dates: end: 20040810
  6. AMOBAN [Suspect]
     Dates: end: 20040810
  7. DEPAS [Suspect]
     Dates: end: 20040810
  8. RADICUT [Suspect]
     Dates: end: 20040810
  9. ARGATROBAN [Suspect]
     Dates: end: 20040810
  10. PERDIPINE [Suspect]
     Dates: end: 20040810
  11. MAXIPIME [Suspect]
     Dates: end: 20040810

REACTIONS (1)
  - STEVENS-JOHNSON SYNDROME [None]
